FAERS Safety Report 15844527 (Version 2)
Quarter: 2019Q1

REPORT INFORMATION
  Report Type: Spontaneous
  Country: FR (occurrence: FR)
  Receive Date: 20190118
  Receipt Date: 20190201
  Transmission Date: 20190417
  Serious: Yes (Hospitalization)
  Sender: FDA-Public Use
  Company Number: FR-ELI_LILLY_AND_COMPANY-FR201901006575

PATIENT
  Age: 82 Year
  Sex: Female
  Weight: 78 kg

DRUGS (11)
  1. SPECIAFOLDINE [Suspect]
     Active Substance: FOLIC ACID
     Indication: HYPOVITAMINOSIS
     Dosage: 5 MG, DAILY
     Route: 048
     Dates: start: 20180906, end: 20181118
  2. ATORVASTATINA [ATORVASTATIN] [Suspect]
     Active Substance: ATORVASTATIN
     Indication: CARDIOVASCULAR EVENT PROPHYLAXIS
     Dosage: 10 MG, DAILY
     Route: 048
     Dates: start: 20180906, end: 20181119
  3. CYMBALTA [Suspect]
     Active Substance: DULOXETINE HYDROCHLORIDE
     Indication: DEPRESSION
     Dosage: 30 MG, DAILY
     Route: 048
     Dates: start: 20180906
  4. VICTOZA [Suspect]
     Active Substance: LIRAGLUTIDE
     Indication: KETOSIS-PRONE DIABETES MELLITUS
     Dosage: 1.2 MG, DAILY
     Route: 048
     Dates: start: 20180906
  5. FUROSEMIDE. [Suspect]
     Active Substance: FUROSEMIDE
     Indication: HYPERTENSION
     Dosage: 20 MG, DAILY
     Route: 048
     Dates: start: 20180906
  6. LERCAN [Suspect]
     Active Substance: LERCANIDIPINE
     Indication: HYPERTENSION
     Dosage: 20 MG, DAILY
     Route: 048
     Dates: start: 20180906
  7. DUOPLAVIN [Suspect]
     Active Substance: ASPIRIN\CLOPIDOGREL
     Indication: THROMBOSIS PROPHYLAXIS
     Dosage: 1 DF, DAILY
     Route: 048
     Dates: start: 20180906, end: 20181118
  8. LANTUS [Suspect]
     Active Substance: INSULIN GLARGINE
     Indication: KETOSIS-PRONE DIABETES MELLITUS
     Dosage: 22 IU, DAILY
     Route: 058
     Dates: start: 20180906
  9. ZYMAD [Suspect]
     Active Substance: CHOLECALCIFEROL
     Indication: HYPOVITAMINOSIS
     Dosage: 80000 IU, 2/M
     Route: 048
     Dates: start: 20180906, end: 20181121
  10. RAMIPRIL. [Suspect]
     Active Substance: RAMIPRIL
     Indication: HYPERTENSION
     Dosage: 10 MG, DAILY
     Route: 048
     Dates: start: 20180906
  11. DOLIPRANE [Suspect]
     Active Substance: ACETAMINOPHEN
     Indication: PAIN
     Dosage: 3 G, DAILY
     Route: 048
     Dates: start: 20180906

REACTIONS (3)
  - Fall [Not Recovered/Not Resolved]
  - Asthenia [Not Recovered/Not Resolved]
  - Rhabdomyolysis [Not Recovered/Not Resolved]

NARRATIVE: CASE EVENT DATE: 20181103
